FAERS Safety Report 12626683 (Version 1)
Quarter: 2016Q3

REPORT INFORMATION
  Report Type: Report from Study
  Country: BR (occurrence: BR)
  Receive Date: 20160805
  Receipt Date: 20160805
  Transmission Date: 20161109
  Serious: Yes (Hospitalization, Other)
  Sender: FDA-Public Use
  Company Number: PHHY2016BR046253

PATIENT
  Sex: Male
  Weight: 41 kg

DRUGS (3)
  1. EXJADE [Suspect]
     Active Substance: DEFERASIROX
     Dosage: 10 MG/KG, QD (1 DF OF 500 MG)
     Route: 048
  2. TEGRETOL [Concomitant]
     Active Substance: CARBAMAZEPINE
     Indication: SEIZURE
     Dosage: 2 DF, QD
     Route: 048
  3. EXJADE [Suspect]
     Active Substance: DEFERASIROX
     Indication: MYELODYSPLASTIC SYNDROME
     Dosage: 25 MG/KG, QD (2 DF OF 500 MG)
     Route: 048
     Dates: start: 2015

REACTIONS (16)
  - Hepatic function abnormal [Unknown]
  - Myelodysplastic syndrome [Unknown]
  - Disease progression [Unknown]
  - General physical health deterioration [Unknown]
  - Nausea [Unknown]
  - Drug intolerance [Unknown]
  - Liver disorder [Unknown]
  - Urinary tract infection [Unknown]
  - Serum ferritin increased [Unknown]
  - Erysipelas [Unknown]
  - Dysgeusia [Not Recovered/Not Resolved]
  - Hypophagia [Unknown]
  - Anaemia [Unknown]
  - Gastric disorder [Unknown]
  - Malaise [Not Recovered/Not Resolved]
  - Diet refusal [Not Recovered/Not Resolved]
